FAERS Safety Report 11048275 (Version 1)
Quarter: 2015Q2

REPORT INFORMATION
  Report Type: Spontaneous
  Country: DE (occurrence: DE)
  Receive Date: 20150420
  Receipt Date: 20150420
  Transmission Date: 20150821
  Serious: Yes (Hospitalization)
  Sender: FDA-Public Use
  Company Number: DE-SA-2015SA046690

PATIENT
  Age: 44 Year
  Sex: Female
  Weight: 65 kg

DRUGS (6)
  1. LITHIUM. [Suspect]
     Active Substance: LITHIUM
     Indication: BIPOLAR DISORDER
     Route: 065
  2. PERAZINE [Suspect]
     Active Substance: PERAZINE
     Indication: SUICIDE ATTEMPT
     Route: 065
  3. LITHIUM. [Suspect]
     Active Substance: LITHIUM
     Indication: BIPOLAR DISORDER
     Route: 065
  4. ZOLPIDEM TARTRATE. [Suspect]
     Active Substance: ZOLPIDEM TARTRATE
     Indication: SUICIDE ATTEMPT
     Route: 065
  5. LITHIUM. [Suspect]
     Active Substance: LITHIUM
     Indication: SUICIDE ATTEMPT
     Route: 065
  6. LITHIUM. [Suspect]
     Active Substance: LITHIUM
     Indication: SUICIDE ATTEMPT
     Route: 065

REACTIONS (6)
  - Coma scale abnormal [Recovered/Resolved]
  - Intentional overdose [Unknown]
  - Toxicity to various agents [Recovered/Resolved]
  - Somnolence [Recovered/Resolved]
  - Polyuria [Recovered/Resolved]
  - Suicide attempt [Recovered/Resolved]
